FAERS Safety Report 11106177 (Version 2)
Quarter: 2015Q2

REPORT INFORMATION
  Report Type: Spontaneous
  Country: CL (occurrence: CL)
  Receive Date: 20150512
  Receipt Date: 20150520
  Transmission Date: 20150821
  Serious: Yes (Hospitalization)
  Sender: FDA-Public Use
  Company Number: CL-SA-2015SA053470

PATIENT
  Sex: Female
  Weight: 28 kg

DRUGS (1)
  1. CEREZYME [Suspect]
     Active Substance: IMIGLUCERASE
     Indication: GAUCHER^S DISEASE
     Dosage: DOSE:60 UNIT(S)/KILOGRAM BODYWEIGHT
     Route: 042
     Dates: start: 2006

REACTIONS (5)
  - Bone pain [Unknown]
  - Asthenia [Unknown]
  - Bronchitis [Recovered/Resolved]
  - Pyrexia [Not Recovered/Not Resolved]
  - Synovitis [Recovering/Resolving]

NARRATIVE: CASE EVENT DATE: 20150417
